FAERS Safety Report 7271586-7 (Version None)
Quarter: 2011Q1

REPORT INFORMATION
  Report Type: 
  Country: None (occurrence: None)
  Receive Date: 20110125
  Receipt Date: 20110125
  Transmission Date: 20110831
  Serious: Yes (Other)
  Sender: FDA-Public Use
  Company Number: None

PATIENT
  Age: 24 Year
  Sex: Female
  Weight: 63.9572 kg

DRUGS (1)
  1. IMPLANON [Suspect]
     Indication: CONTRACEPTION

REACTIONS (1)
  - HYPERSENSITIVITY [None]
